FAERS Safety Report 8519924-9 (Version None)
Quarter: 2012Q3

REPORT INFORMATION
  Report Type: 
  Country: None (occurrence: None)
  Receive Date: 20120719
  Receipt Date: 20120712
  Transmission Date: 20120928
  Serious: Yes (Other)
  Sender: FDA-Public Use
  Company Number: BR-BRISTOL-MYERS SQUIBB COMPANY-16607921

PATIENT
  Age: 91 Year
  Sex: Female

DRUGS (1)
  1. METFORMIN HYDROCHLORIDE [Suspect]
     Indication: BLOOD GLUCOSE DECREASED
     Dosage: TABS, 1 TBS AFTER LUNCH
     Dates: start: 20120314

REACTIONS (3)
  - CANDIDIASIS [None]
  - MICTURITION DISORDER [None]
  - DYSURIA [None]
